FAERS Safety Report 6505639-5 (Version None)
Quarter: 2009Q4

REPORT INFORMATION
  Report Type: 
  Country: None (occurrence: None)
  Receive Date: 20091218
  Receipt Date: 20091210
  Transmission Date: 20100525
  Serious: Yes (Hospitalization)
  Sender: FDA-Public Use
  Company Number: GXKR2009NL13366

PATIENT
  Sex: Female
  Weight: 55 kg

DRUGS (2)
  1. CEFTRIAXONE SANDOZ (NGX) [Suspect]
     Indication: TYPHUS
     Dosage: 2000 MG, QD
     Route: 042
     Dates: start: 20091026
  2. AZITHROMYCIN [Concomitant]

REACTIONS (3)
  - ABORTION SPONTANEOUS [None]
  - DRUG EXPOSURE DURING PREGNANCY [None]
  - UTERINE DILATION AND CURETTAGE [None]
